FAERS Safety Report 4622451-2 (Version None)
Quarter: 2005Q1

REPORT INFORMATION
  Report Type: 
  Country: None (occurrence: None)
  Receive Date: 20050317
  Receipt Date: 20040504
  Transmission Date: 20050727
  Serious: Yes (Hospitalization)
  Sender: FDA-Public Use
  Company Number: PHEH2004US03842

PATIENT
  Age: 46 Year
  Sex: Female

DRUGS (4)
  1. TRILEPTAL [Suspect]
     Indication: BIPOLAR DISORDER
     Dosage: 120 MG, QHS, ORAL; 300 MG, BID, ORAL
     Route: 048
     Dates: start: 20040227, end: 20040307
  2. TRILEPTAL [Suspect]
     Indication: BIPOLAR DISORDER
     Dosage: 120 MG, QHS, ORAL; 300 MG, BID, ORAL
     Route: 048
     Dates: start: 20040308, end: 20040310
  3. PROZAC [Concomitant]
  4. KLONOPIN [Concomitant]

REACTIONS (6)
  - ANXIETY [None]
  - DEHYDRATION [None]
  - DIARRHOEA [None]
  - GASTROINTESTINAL PAIN [None]
  - IRRITABILITY [None]
  - TACHYCARDIA [None]
